FAERS Safety Report 20624596 (Version 1)
Quarter: 2022Q1

REPORT INFORMATION
  Report Type: Spontaneous
  Country: None (occurrence: GB)
  Receive Date: 20220322
  Receipt Date: 20220322
  Transmission Date: 20220423
  Serious: Yes (Other)
  Sender: FDA-Public Use
  Company Number: GB-Canton Laboratories, LLC-2127031

PATIENT
  Age: 29 Year
  Sex: Female

DRUGS (1)
  1. NAPROSYN [Suspect]
     Active Substance: NAPROXEN
     Indication: Adverse drug reaction
     Route: 064
     Dates: start: 20220222

REACTIONS (1)
  - Glossodynia [Not Recovered/Not Resolved]
